FAERS Safety Report 25642553 (Version 1)
Quarter: 2025Q3

REPORT INFORMATION
  Report Type: Spontaneous
  Country: US (occurrence: US)
  Receive Date: 20250805
  Receipt Date: 20250805
  Transmission Date: 20251021
  Serious: No
  Sender: GLAXOSMITHKLINE
  Company Number: US-GSK-US2025097033

PATIENT
  Age: 67 Year
  Sex: Female

DRUGS (2)
  1. INCRUSE ELLIPTA [Suspect]
     Active Substance: UMECLIDINIUM BROMIDE
     Indication: Bronchitis
     Dosage: 1 PUFF(S), QD
     Dates: start: 20250726, end: 20250726
  2. COMBIVENT [Concomitant]
     Active Substance: ALBUTEROL SULFATE\IPRATROPIUM BROMIDE
     Indication: Dyspnoea

REACTIONS (3)
  - Presyncope [Unknown]
  - Dysgeusia [Unknown]
  - Device use error [Unknown]

NARRATIVE: CASE EVENT DATE: 20250726
